FAERS Safety Report 8642849 (Version 2)
Quarter: 2013Q2

REPORT INFORMATION
  Report Type: Report from Study
  Country: MX (occurrence: MX)
  Receive Date: 20120629
  Receipt Date: 20130426
  Transmission Date: 20140414
  Serious: Yes (Death)
  Sender: FDA-Public Use
  Company Number: PHHY2012MX055252

PATIENT
  Age: 49 Year
  Sex: Female

DRUGS (1)
  1. GLIVEC [Suspect]
     Indication: ACUTE LYMPHOCYTIC LEUKAEMIA
     Dosage: 600 MG
     Route: 048

REACTIONS (1)
  - Death [Fatal]
